FAERS Safety Report 15681787 (Version 4)
Quarter: 2019Q1

REPORT INFORMATION
  Report Type: Spontaneous
  Country: GB (occurrence: GB)
  Receive Date: 20181203
  Receipt Date: 20190215
  Transmission Date: 20190417
  Serious: Yes (Death, Hospitalization, Other)
  Sender: FDA-Public Use
  Company Number: GB-009507513-0508USA01641

PATIENT
  Age: 75 Year
  Sex: Female

DRUGS (7)
  1. ASPIRIN. [Suspect]
     Active Substance: ASPIRIN
     Dosage: UNK
     Route: 065
  2. ZOTON [Suspect]
     Active Substance: LANSOPRAZOLE
     Dosage: UNK
     Route: 065
  3. ATENOLOL. [Suspect]
     Active Substance: ATENOLOL
     Dosage: UNK
  4. FUROSEMIDE. [Suspect]
     Active Substance: FUROSEMIDE
     Dosage: UNK
  5. LISINOPRIL. [Suspect]
     Active Substance: LISINOPRIL
     Indication: HYPERTENSION
     Dosage: UNK
     Route: 048
  6. NITROGLYCERIN. [Suspect]
     Active Substance: NITROGLYCERIN
     Dosage: UNK
     Route: 065
  7. ATORVASTATIN CALCIUM. [Suspect]
     Active Substance: ATORVASTATIN CALCIUM
     Dosage: UNK
     Route: 065

REACTIONS (12)
  - Adenocarcinoma of colon [Not Recovered/Not Resolved]
  - Pulmonary oedema [Fatal]
  - Stridor [Not Recovered/Not Resolved]
  - Myocardial infarction [Recovered/Resolved]
  - Overdose [Not Recovered/Not Resolved]
  - Angioedema [Not Recovered/Not Resolved]
  - Laryngospasm [Not Recovered/Not Resolved]
  - Lower respiratory tract infection [Recovered/Resolved]
  - Respiratory failure [Not Recovered/Not Resolved]
  - Gastrointestinal haemorrhage [Fatal]
  - Laryngeal oedema [Not Recovered/Not Resolved]
  - Obstructive airways disorder [Not Recovered/Not Resolved]
